FAERS Safety Report 6677428-2 (Version None)
Quarter: 2010Q2

REPORT INFORMATION
  Report Type: 
  Country: None (occurrence: None)
  Receive Date: 20100412
  Receipt Date: 20100203
  Transmission Date: 20101027
  Serious: No
  Sender: FDA-Public Use
  Company Number: US-ALEXION-A201000136

PATIENT
  Sex: Female

DRUGS (8)
  1. SOLIRIS [Suspect]
     Indication: PAROXYSMAL NOCTURNAL HAEMOGLOBINURIA
     Dosage: 600 MG, QW
     Route: 042
     Dates: start: 20091021, end: 20091111
  2. SOLIRIS [Suspect]
     Dosage: 900 MG, UNK
     Route: 042
     Dates: start: 20091118
  3. NADOLOL [Concomitant]
     Indication: BLOOD PRESSURE
     Dosage: UNK
     Route: 048
  4. ESTAZOLAM [Concomitant]
     Indication: SLEEP DISORDER
     Dosage: UNK
     Route: 048
  5. AMLODIPINE [Concomitant]
     Indication: BLOOD PRESSURE
     Dosage: UNK
     Route: 048
  6. PHENYTOIN [Concomitant]
     Indication: CONVULSION PROPHYLAXIS
     Dosage: UNK
     Route: 048
  7. SERTRALINE HCL [Concomitant]
     Indication: DEPRESSION
     Dosage: UNK
     Route: 048
  8. VITAMIN A [Concomitant]
     Dosage: UNK
     Route: 048

REACTIONS (1)
  - DIZZINESS [None]
